FAERS Safety Report 17976139 (Version 2)
Quarter: 2020Q3

REPORT INFORMATION
  Report Type: Spontaneous
  Country: US (occurrence: US)
  Receive Date: 20200703
  Receipt Date: 20200710
  Transmission Date: 20201103
  Serious: Yes (Other)
  Sender: FDA-Public Use
  Company Number: US-ALKEM LABORATORIES LIMITED-US-ALKEM-2020-03161

PATIENT
  Age: 19 Year
  Sex: Male
  Weight: 62 kg

DRUGS (1)
  1. LIDOCAINE. [Suspect]
     Active Substance: LIDOCAINE
     Indication: ANAESTHESIA
     Dosage: UNK
     Route: 065

REACTIONS (9)
  - Generalised tonic-clonic seizure [Recovered/Resolved]
  - Chills [Unknown]
  - Vomiting [Unknown]
  - Hypotension [Recovered/Resolved]
  - Nausea [Unknown]
  - Bradycardia [Recovered/Resolved]
  - Fatigue [Recovered/Resolved]
  - Toxicity to various agents [Unknown]
  - Somnolence [Unknown]
